FAERS Safety Report 5647826-4 (Version None)
Quarter: 2008Q1

REPORT INFORMATION
  Report Type: 
  Country: None (occurrence: None)
  Receive Date: 20080303
  Receipt Date: 20080206
  Transmission Date: 20080703
  Serious: No
  Sender: FDA-Public Use
  Company Number: US-BOEHRINGER INGELHEIM GMBH, GERMANY-2008-BP-01891BP

PATIENT
  Age: 94 Year
  Sex: Male

DRUGS (1)
  1. AGGRENOX [Suspect]

REACTIONS (1)
  - DIARRHOEA [None]
